FAERS Safety Report 8055091-6 (Version None)
Quarter: 2011Q4

REPORT INFORMATION
  Report Type: 
  Country: None (occurrence: None)
  Receive Date: 20111213
  Receipt Date: 20110823
  Transmission Date: 20120403
  Serious: No
  Sender: FDA-Public Use
  Company Number: 2011SP040112

PATIENT
  Age: 63 Year
  Sex: Female

DRUGS (1)
  1. SAPHRIS [Suspect]
     Indication: PRODUCT USED FOR UNKNOWN INDICATION
     Dosage: 20 MG; QPM, 10 MG; QPM

REACTIONS (4)
  - DRUG PRESCRIBING ERROR [None]
  - NECK PAIN [None]
  - OEDEMA PERIPHERAL [None]
  - TREMOR [None]
